FAERS Safety Report 4793669-3 (Version None)
Quarter: 2005Q4

REPORT INFORMATION
  Report Type: 
  Country: None (occurrence: None)
  Receive Date: 20051006
  Receipt Date: 20051004
  Transmission Date: 20060501
  Serious: Yes (Other)
  Sender: FDA-Public Use
  Company Number: 005772

PATIENT
  Sex: Female

DRUGS (6)
  1. MEDROXYPROGESTERONE ACETATE [Suspect]
     Dosage: ORAL
     Route: 048
  2. PROVERA [Suspect]
     Dosage: ORAL
     Route: 048
  3. PREMPHASE (PREMARIN;CYCRIN 14/14) [Suspect]
     Dosage: ORAL
     Route: 048
  4. PREMPRO [Suspect]
     Dosage: ORAL
     Route: 048
  5. PREMARIN [Suspect]
     Dosage: ORAL
     Route: 048
  6. CONJUGATED ESTROGENS [Suspect]
     Dosage: ORAL
     Route: 048

REACTIONS (1)
  - BREAST CANCER FEMALE [None]
